FAERS Safety Report 16103650 (Version 2)
Quarter: 2019Q2

REPORT INFORMATION
  Report Type: Report from Study
  Country: AU (occurrence: AU)
  Receive Date: 20190322
  Receipt Date: 20190403
  Transmission Date: 20190711
  Serious: Yes (Hospitalization)
  Sender: FDA-Public Use
  Company Number: AU-ROCHE-2286883

PATIENT
  Age: 71 Year
  Sex: Female
  Weight: 126 kg

DRUGS (13)
  1. CHLORAMBUCIL [Suspect]
     Active Substance: CHLORAMBUCIL
     Dosage: STUDY REGIMEN COMPLETED
     Route: 048
     Dates: start: 20160824
  2. ATORVASTATIN [Concomitant]
     Active Substance: ATORVASTATIN
     Indication: HYPERCHOLESTEROLAEMIA
     Route: 065
     Dates: start: 2001
  3. SERETIDE [Concomitant]
     Active Substance: FLUTICASONE PROPIONATE\SALMETEROL XINAFOATE
     Indication: DYSPNOEA
     Dosage: 1 PUFF, AS NEEDED?250 MCG FLUTICASONE PROPIONATE AND 50 MCG SALMETEROL
     Route: 065
     Dates: start: 201501
  4. PANADOL [Concomitant]
     Active Substance: ACETAMINOPHEN
     Indication: ARTHRALGIA
     Route: 065
     Dates: start: 2010
  5. VENLAFAXINE [Concomitant]
     Active Substance: VENLAFAXINE HYDROCHLORIDE
     Indication: BIPOLAR DISORDER
     Route: 065
     Dates: start: 2003
  6. OBINUTUZUMAB. [Suspect]
     Active Substance: OBINUTUZUMAB
     Dosage: STUDY REGIMEN COMPLETED
     Route: 042
     Dates: start: 20160810, end: 20160810
  7. CHLORAMBUCIL [Suspect]
     Active Substance: CHLORAMBUCIL
     Route: 048
     Dates: start: 20160810
  8. CANDESARTAN. [Concomitant]
     Active Substance: CANDESARTAN
     Indication: HYPERTENSION
     Route: 065
     Dates: start: 2012
  9. OBINUTUZUMAB. [Suspect]
     Active Substance: OBINUTUZUMAB
     Indication: CHRONIC LYMPHOCYTIC LEUKAEMIA
     Dosage: TOTAL OF 6 TREATMENT CYCLES
     Route: 042
     Dates: start: 20160323
  10. CHLORAMBUCIL [Suspect]
     Active Substance: CHLORAMBUCIL
     Indication: CHRONIC LYMPHOCYTIC LEUKAEMIA
     Dosage: ADMINISTERED ON DAYS 1 AND 15 OF CYCLES 1 THROUGH 6?TOTAL TABLETS TAKEN 29
     Route: 048
     Dates: start: 20160323
  11. THYROXINE [Concomitant]
     Active Substance: LEVOTHYROXINE
     Indication: HYPOTHYROIDISM
     Dosage: ALTERNATING DAYS
     Route: 065
     Dates: start: 20180807
  12. PANTOPRAZOLE [Concomitant]
     Active Substance: PANTOPRAZOLE
     Indication: NAUSEA
     Route: 065
     Dates: start: 20171114
  13. FUROSEMIDE. [Concomitant]
     Active Substance: FUROSEMIDE
     Indication: STASIS DERMATITIS
     Dosage: DAILY AS NEEDED
     Route: 065
     Dates: start: 2015

REACTIONS (1)
  - Infective exacerbation of chronic obstructive airways disease [Not Recovered/Not Resolved]

NARRATIVE: CASE EVENT DATE: 20190317
